FAERS Safety Report 20941166 (Version 1)
Quarter: 2022Q2

REPORT INFORMATION
  Report Type: Spontaneous
  Country: IT (occurrence: None)
  Receive Date: 20220609
  Receipt Date: 20220609
  Transmission Date: 20220721
  Serious: Yes (Hospitalization)
  Sender: FDA-Public Use
  Company Number: 2022A209587

PATIENT
  Age: 21 Year
  Sex: Male

DRUGS (2)
  1. QUETIAPINE FUMARATE [Suspect]
     Active Substance: QUETIAPINE FUMARATE
     Dosage: 2500.0MG ONCE/SINGLE ADMINISTRATION
     Route: 048
     Dates: start: 20220515, end: 20220515
  2. RIVOTRIL [Suspect]
     Active Substance: CLONAZEPAM
     Dosage: 5.0ML ONCE/SINGLE ADMINISTRATION
     Route: 048
     Dates: start: 20220515, end: 20220515

REACTIONS (2)
  - Drug abuse [Recovering/Resolving]
  - Sopor [Recovering/Resolving]

NARRATIVE: CASE EVENT DATE: 20220515
